FAERS Safety Report 7319436-4 (Version None)
Quarter: 2011Q1

REPORT INFORMATION
  Report Type: 
  Country: None (occurrence: None)
  Receive Date: 20110223
  Receipt Date: 20110223
  Transmission Date: 20110831
  Serious: Yes (Other)
  Sender: FDA-Public Use
  Company Number: None

PATIENT
  Age: 40 Year
  Sex: Male
  Weight: 77 kg

DRUGS (1)
  1. MIRTAZAPINE [Suspect]
     Indication: SOMNOLENCE
     Dosage: 15MG HS PO
     Route: 048
     Dates: start: 20110217, end: 20110218

REACTIONS (2)
  - RESTLESSNESS [None]
  - MUSCLE SPASMS [None]
